FAERS Safety Report 9717515 (Version 1)
Quarter: 2013Q4

REPORT INFORMATION
  Report Type: Spontaneous
  Country: US (occurrence: US)
  Receive Date: 20131127
  Receipt Date: 20131127
  Transmission Date: 20140711
  Serious: No
  Sender: FDA-Public Use
  Company Number: US-GILEAD-2009-0020219

PATIENT
  Sex: Male
  Weight: 113.4 kg

DRUGS (14)
  1. LETAIRIS [Suspect]
     Indication: PULMONARY ARTERIAL HYPERTENSION
     Route: 048
     Dates: start: 20081209
  2. LOPRESSOR [Concomitant]
  3. ADALAT CC [Concomitant]
  4. BIDIL [Concomitant]
  5. DEMADEX [Concomitant]
  6. ZOCOR [Concomitant]
  7. ALLOPURINOL [Concomitant]
  8. ZEMPLAR [Concomitant]
  9. ASPIRIN [Concomitant]
  10. CLARITIN [Concomitant]
  11. PRILOSEC [Concomitant]
  12. FERROUS SULFATE [Concomitant]
  13. POTASSIUM CHLORIDE [Concomitant]
  14. NASONEX [Concomitant]

REACTIONS (3)
  - Oedema peripheral [Unknown]
  - Oedema [Unknown]
  - Dyspnoea [Unknown]
